FAERS Safety Report 10974717 (Version 1)
Quarter: 2015Q2

REPORT INFORMATION
  Report Type: Spontaneous
  Country: US (occurrence: US)
  Receive Date: 20150401
  Receipt Date: 20150401
  Transmission Date: 20150821
  Serious: Yes (Hospitalization)
  Sender: FDA-Public Use
  Company Number: US-ASTRAZENECA-2015SE28927

PATIENT
  Age: 24709 Day
  Sex: Female
  Weight: 70.3 kg

DRUGS (3)
  1. NEXIUM [Suspect]
     Active Substance: ESOMEPRAZOLE MAGNESIUM
     Indication: GASTROOESOPHAGEAL REFLUX DISEASE
     Route: 048
     Dates: start: 2001
  2. NEXIUM [Suspect]
     Active Substance: ESOMEPRAZOLE MAGNESIUM
     Indication: ULCER
     Route: 048
     Dates: start: 2001
  3. MEDICATIONS FOR BLOOD PRESSURE AND CHOLESTEROL [Concomitant]

REACTIONS (3)
  - Drug dose omission [Unknown]
  - Road traffic accident [Unknown]
  - Off label use [Unknown]

NARRATIVE: CASE EVENT DATE: 20150314
